FAERS Safety Report 4426649-8 (Version None)
Quarter: 2004Q3

REPORT INFORMATION
  Report Type: 
  Country: None (occurrence: None)
  Receive Date: 20040816
  Receipt Date: 20031230
  Transmission Date: 20050211
  Serious: Yes (Other)
  Sender: FDA-Public Use
  Company Number: PHHO2003US16769

PATIENT
  Age: 23 Year
  Sex: Female
  Weight: 84 kg

DRUGS (4)
  1. TEGASEROD VS PLACEBO [Suspect]
     Indication: IRRITABLE BOWEL SYNDROME
     Dosage: 6 MG, BID
     Route: 048
     Dates: start: 20031104, end: 20031205
  2. AVIANE-21 [Concomitant]
     Indication: CONTRACEPTION
  3. PROMETHAZINE [Concomitant]
     Indication: NAUSEA
  4. CIPRO [Concomitant]
     Indication: CYSTITIS

REACTIONS (8)
  - ABDOMINAL PAIN [None]
  - CHOLELITHIASIS [None]
  - CONCOMITANT DISEASE PROGRESSION [None]
  - CYSTITIS [None]
  - DIARRHOEA [None]
  - NAUSEA [None]
  - PANCREATITIS [None]
  - VOMITING [None]
